FAERS Safety Report 10676070 (Version 1)
Quarter: 2014Q4

REPORT INFORMATION
  Report Type: Spontaneous
  Country: FI (occurrence: FI)
  Receive Date: 20141225
  Receipt Date: 20141225
  Transmission Date: 20150529
  Serious: Yes (Hospitalization)
  Sender: FDA-Public Use
  Company Number: FI-ROCHE-1512070

PATIENT
  Age: 83 Year
  Sex: Male

DRUGS (9)
  1. TAMIFLU [Suspect]
     Active Substance: OSELTAMIVIR PHOSPHATE
     Indication: ANTIVIRAL PROPHYLAXIS
     Route: 048
     Dates: start: 20141128, end: 20141202
  2. DUOTRAV [Concomitant]
     Active Substance: TIMOLOL\TRAVOPROST
     Indication: GLAUCOMA
     Dosage: 40 MICROG/ML + 5 MG/ML
     Route: 047
  3. PRAMIPEXOLE [Concomitant]
     Active Substance: PRAMIPEXOLE
     Indication: UNEVALUABLE EVENT
     Route: 048
  4. OMEPRAZOL RATIOPHARM [Concomitant]
     Indication: PROPHYLAXIS AGAINST GASTROINTESTINAL ULCER
     Route: 048
  5. COHEMIN DEPOT [Concomitant]
     Indication: VITAMIN SUPPLEMENTATION
     Route: 030
  6. VITAMIN C [Concomitant]
     Active Substance: ASCORBIC ACID
     Indication: INFECTION PROPHYLAXIS
     Route: 048
     Dates: start: 20141127
  7. CALOGEN EXTRA [Concomitant]
     Indication: NUTRITIONAL SUPPLEMENTATION
     Route: 048
  8. VOLTAREN [Concomitant]
     Active Substance: DICLOFENAC SODIUM
     Indication: PAIN
     Dosage: 3-4 TIMES A DAY AS NEEDED
     Route: 062
  9. EXELON [Concomitant]
     Active Substance: RIVASTIGMINE TARTRATE
     Indication: DEMENTIA
     Route: 062

REACTIONS (8)
  - Disorientation [Recovered/Resolved]
  - Aggression [Recovered/Resolved]
  - Hallucination [Recovered/Resolved]
  - Restlessness [Recovered/Resolved]
  - Dysarthria [Recovered/Resolved]
  - C-reactive protein increased [Recovering/Resolving]
  - Motor dysfunction [Recovered/Resolved]
  - Sopor [Recovered/Resolved]

NARRATIVE: CASE EVENT DATE: 20141201
